FAERS Safety Report 11127199 (Version 1)
Quarter: 2015Q2

REPORT INFORMATION
  Report Type: Spontaneous
  Country: US (occurrence: None)
  Receive Date: 20150520
  Receipt Date: 20150520
  Transmission Date: 20150821
  Serious: Yes (Life-Threatening, Disabling)
  Sender: FDA-Public Use
  Company Number: None

PATIENT
  Age: 80 Year
  Sex: Female
  Weight: 73.94 kg

DRUGS (25)
  1. VIT B [Concomitant]
     Active Substance: VITAMINS
  2. IRON [Concomitant]
     Active Substance: IRON
  3. PROBIOTIC [Concomitant]
     Active Substance: PROBIOTICS NOS
  4. VIT A [Concomitant]
  5. VITAMIN E [Concomitant]
     Active Substance: .ALPHA.-TOCOPHEROL
  6. TEA [Concomitant]
     Active Substance: TEA LEAF
  7. BIOTIN [Concomitant]
     Active Substance: BIOTIN
  8. CALCIUM [Concomitant]
     Active Substance: CALCIUM
  9. PRAVASTATIN [Concomitant]
     Active Substance: PRAVASTATIN\PRAVASTATIN SODIUM
  10. COREG [Concomitant]
     Active Substance: CARVEDILOL
  11. ASA [Concomitant]
     Active Substance: ASPIRIN
  12. ISORDIL [Concomitant]
     Active Substance: ISOSORBIDE DINITRATE
  13. RANEXA [Suspect]
     Active Substance: RANOLAZINE
     Indication: DIABETES MELLITUS
     Dosage: 500 MG, ONE TWICE DAY, TWICE DAILY, BY MOUTH
     Route: 048
     Dates: start: 20150412, end: 20150502
  14. ALPRAZOLAM. [Concomitant]
     Active Substance: ALPRAZOLAM
  15. VITAMIN B12 [Concomitant]
     Active Substance: CYANOCOBALAMIN
  16. PANTOTHERIC ACID [Concomitant]
  17. VITAMIN D [Concomitant]
     Active Substance: CHOLECALCIFEROL
  18. CALEIVA [Concomitant]
  19. SELENIUM [Concomitant]
     Active Substance: SELENIUM
  20. INSULIN PUMP [Concomitant]
     Active Substance: INSULIN NOS
  21. CLONIDINE PATCH [Concomitant]
  22. VITAMIN B6 [Concomitant]
     Active Substance: PYRIDOXINE HYDROCHLORIDE
  23. RANEXA [Suspect]
     Active Substance: RANOLAZINE
     Indication: CARDIAC DISORDER
     Dosage: 500 MG, ONE TWICE DAY, TWICE DAILY, BY MOUTH
     Route: 048
     Dates: start: 20150412, end: 20150502
  24. LISINOPRIL. [Concomitant]
     Active Substance: LISINOPRIL
  25. VITAMIN C [Concomitant]
     Active Substance: ASCORBIC ACID

REACTIONS (1)
  - Hypoglycaemia [None]

NARRATIVE: CASE EVENT DATE: 20150413
